FAERS Safety Report 12216207 (Version 3)
Quarter: 2016Q3

REPORT INFORMATION
  Report Type: Spontaneous
  Country: FR (occurrence: FR)
  Receive Date: 20160329
  Receipt Date: 20160725
  Transmission Date: 20161109
  Serious: Yes (Other)
  Sender: FDA-Public Use
  Company Number: FR-009507513-1603FRA011696

PATIENT
  Age: 21 Year
  Sex: Male

DRUGS (2)
  1. LAROXYL [Concomitant]
     Active Substance: AMITRIPTYLINE
     Indication: PARKINSON^S DISEASE
     Dosage: IN THE EVENING
  2. SINEMET [Suspect]
     Active Substance: CARBIDOPA\LEVODOPA
     Indication: PARKINSON^S DISEASE
     Dosage: ONE TABLET AT LUNCH
     Route: 048
     Dates: start: 20160320, end: 20160321

REACTIONS (3)
  - Acute psychosis [Recovered/Resolved]
  - Off label use [Unknown]
  - Acute psychosis [Recovering/Resolving]

NARRATIVE: CASE EVENT DATE: 2016
